FAERS Safety Report 20871036 (Version 7)
Quarter: 2023Q1

REPORT INFORMATION
  Report Type: Report from Study
  Country: JP (occurrence: JP)
  Receive Date: 20220525
  Receipt Date: 20230301
  Transmission Date: 20230417
  Serious: Yes (Hospitalization, Other)
  Sender: FDA-Public Use
  Company Number: JP-ASTELLAS-2022JP007295

PATIENT
  Age: 80 Year
  Sex: Male

DRUGS (16)
  1. ENFORTUMAB VEDOTIN [Suspect]
     Active Substance: ENFORTUMAB VEDOTIN
     Indication: Metastatic carcinoma of the bladder
     Dosage: 84 MG (1.0 MG/KG), EVERY 2 WEEKS
     Route: 041
     Dates: start: 20220118, end: 20220201
  2. ENFORTUMAB VEDOTIN [Suspect]
     Active Substance: ENFORTUMAB VEDOTIN
     Dosage: 78.8 MG (1.0 MG/KG), EVERY 2 WEEKS
     Route: 041
     Dates: start: 20220216, end: 20220301
  3. ENFORTUMAB VEDOTIN [Suspect]
     Active Substance: ENFORTUMAB VEDOTIN
     Dosage: 76.5 MG (1.0 MG/KG), EVERY 2 WEEKS
     Route: 041
     Dates: start: 20220315, end: 20220329
  4. ENFORTUMAB VEDOTIN [Suspect]
     Active Substance: ENFORTUMAB VEDOTIN
     Dosage: 57.3 MG (1.0 MG/KG), EVERY 2 WEEKS
     Route: 041
     Dates: start: 20220412, end: 20220412
  5. GLIMEPIRIDE [Concomitant]
     Active Substance: GLIMEPIRIDE
     Indication: Diabetes mellitus
     Route: 048
  6. METFORMIN HYDROCHLORIDE [Concomitant]
     Active Substance: METFORMIN HYDROCHLORIDE
     Indication: Diabetes mellitus
     Route: 048
  7. LUSEOGLIFLOZIN [Concomitant]
     Active Substance: LUSEOGLIFLOZIN
     Indication: Diabetes mellitus
     Route: 048
     Dates: start: 20201021
  8. TENELIGLIPTIN [Concomitant]
     Active Substance: TENELIGLIPTIN
     Indication: Diabetes mellitus
     Route: 048
     Dates: start: 20201021
  9. URAPIDIL [Concomitant]
     Active Substance: URAPIDIL
     Indication: Neurogenic bladder
     Route: 048
     Dates: start: 20210213
  10. FEBUXOSTAT [Concomitant]
     Active Substance: FEBUXOSTAT
     Indication: Hyperuricaemia
     Route: 048
     Dates: start: 20210219
  11. XARELTO [Concomitant]
     Active Substance: RIVAROXABAN
     Indication: Pulmonary embolism
     Route: 048
     Dates: start: 20210219
  12. PREGABALIN [Concomitant]
     Active Substance: PREGABALIN
     Indication: Neuropathy peripheral
     Route: 048
     Dates: start: 20210629
  13. TRAMCET [Concomitant]
     Active Substance: ACETAMINOPHEN\TRAMADOL
     Indication: Cancer pain
     Dosage: 1 T, THRICE DAILY
     Route: 048
     Dates: start: 20210821
  14. FEXOFENADINE HYDROCHLORIDE [Concomitant]
     Active Substance: FEXOFENADINE HYDROCHLORIDE
     Indication: Rash
     Route: 048
     Dates: start: 20220315, end: 20221007
  15. DIFLORASONE DIACETATE [Concomitant]
     Active Substance: DIFLORASONE DIACETATE
     Indication: Rash
     Dosage: ADEQUATE DOSE, TWICE DAILY
     Route: 061
     Dates: start: 20220315, end: 20220701
  16. GLYCOSAMINOGLYCANS [Concomitant]
     Active Substance: GLYCOSAMINOGLYCANS
     Indication: Rash
     Dosage: ADEQUATE DOSE, TWICE DAILY
     Route: 050
     Dates: start: 20220315, end: 20220701

REACTIONS (3)
  - Staphylococcal sepsis [Recovering/Resolving]
  - Psoas abscess [Not Recovered/Not Resolved]
  - Infective spondylitis [Recovering/Resolving]

NARRATIVE: CASE EVENT DATE: 20220502
